FAERS Safety Report 7092053-X (Version None)
Quarter: 2010Q4

REPORT INFORMATION
  Report Type: 
  Country: None (occurrence: None)
  Receive Date: 20101109
  Receipt Date: 20080911
  Transmission Date: 20110411
  Serious: No
  Sender: FDA-Public Use
  Company Number: US-KINGPHARMUSA00001-K200801095

PATIENT
  Sex: Female

DRUGS (1)
  1. SKELAXIN [Suspect]

REACTIONS (1)
  - IRIS DISORDER [None]
